FAERS Safety Report 8026207 (Version 2)
Quarter: 2017Q1

REPORT INFORMATION
  Report Type: Spontaneous
  Country: US (occurrence: US)
  Receive Date: 20110708
  Receipt Date: 20170321
  Transmission Date: 20170429
  Serious: No
  Sender: FDA-Public Use
  Company Number: US-GLAXOSMITHKLINE-A0866774A

PATIENT
  Age: 10 Year
  Sex: Male

DRUGS (2)
  1. FLOVENT DISKUS [Suspect]
     Active Substance: FLUTICASONE PROPIONATE
     Indication: PRODUCT USED FOR UNKNOWN INDICATION
  2. FLOVENT [Suspect]
     Active Substance: FLUTICASONE PROPIONATE
     Indication: ASTHMA
     Dosage: 1 PUFF(S), BID
     Route: 055
     Dates: start: 20100504, end: 20100504

REACTIONS (5)
  - Dry throat [Recovered/Resolved]
  - Dyspnoea [Unknown]
  - Pharyngeal disorder [Unknown]
  - Throat tightness [Unknown]
  - Thermal burn [Unknown]

NARRATIVE: CASE EVENT DATE: 20100504
